FAERS Safety Report 23835303 (Version 1)
Quarter: 2024Q2

REPORT INFORMATION
  Report Type: Spontaneous
  Country: DE (occurrence: DE)
  Receive Date: 20240509
  Receipt Date: 20240509
  Transmission Date: 20240716
  Serious: Yes (Other)
  Sender: FDA-Public Use
  Company Number: DE-AMGEN-DEUSP2024088760

PATIENT
  Age: 31 Year
  Sex: Female

DRUGS (3)
  1. BLINATUMOMAB [Suspect]
     Active Substance: BLINATUMOMAB
     Indication: Rheumatoid arthritis
     Dosage: 9 MICROGRAM, QD (TOTAL 38.5)
     Route: 042
  2. BLINATUMOMAB [Suspect]
     Active Substance: BLINATUMOMAB
     Dosage: 9 MICROGRAM, QD (TOTAL 38.5)
     Route: 042
  3. ABATACEPT [Concomitant]
     Active Substance: ABATACEPT
     Indication: Rheumatoid arthritis
     Dosage: UNK UNK, QWK
     Route: 058

REACTIONS (7)
  - Rheumatoid arthritis [Unknown]
  - C-reactive protein increased [Recovered/Resolved]
  - Drug effective for unapproved indication [Unknown]
  - Urinary tract infection [Unknown]
  - Headache [Unknown]
  - Tachycardia [Unknown]
  - Off label use [Unknown]
